FAERS Safety Report 18925741 (Version 1)
Quarter: 2021Q1

REPORT INFORMATION
  Report Type: Report from Study
  Country: GB (occurrence: GB)
  Receive Date: 20210223
  Receipt Date: 20210223
  Transmission Date: 20210420
  Serious: Yes (Other)
  Sender: FDA-Public Use
  Company Number: GB-SAMSUNG BIOEPIS-SB-2021-01309

PATIENT
  Sex: Female

DRUGS (1)
  1. IMRALDI [Suspect]
     Active Substance: ADALIMUMAB
     Indication: JUVENILE IDIOPATHIC ARTHRITIS
     Route: 058
     Dates: start: 20201231

REACTIONS (5)
  - Wrong technique in product usage process [Unknown]
  - COVID-19 [Unknown]
  - Fear of injection [Unknown]
  - Psychiatric symptom [Unknown]
  - Incorrect dose administered [Unknown]
